FAERS Safety Report 19560643 (Version 1)
Quarter: 2021Q3

REPORT INFORMATION
  Report Type: Spontaneous
  Country: US (occurrence: US)
  Receive Date: 20210715
  Receipt Date: 20210715
  Transmission Date: 20211014
  Serious: Yes (Other)
  Sender: FDA-Public Use
  Company Number: None

PATIENT
  Sex: Male

DRUGS (3)
  1. NEUTROGENA ULTRA SHEER DRY TOUCH SUNSCREEN SPF 70 [Suspect]
     Active Substance: AVOBENZONE\HOMOSALATE\OCTISALATE\OCTOCRYLENE
     Indication: PROPHYLAXIS AGAINST SOLAR RADIATION
     Route: 061
     Dates: start: 20210706, end: 20210706
  2. LORATADINE. [Concomitant]
     Active Substance: LORATADINE
  3. SOLUTABLE FIBER [Concomitant]

REACTIONS (1)
  - Application site rash [None]

NARRATIVE: CASE EVENT DATE: 20210706
